FAERS Safety Report 6527316-7 (Version None)
Quarter: 2010Q1

REPORT INFORMATION
  Report Type: 
  Country: None (occurrence: None)
  Receive Date: 20100105
  Receipt Date: 20091229
  Transmission Date: 20100710
  Serious: Yes (Other)
  Sender: FDA-Public Use
  Company Number: GXKR2009US13777

PATIENT
  Age: 18 Year

DRUGS (2)
  1. LEVETIRACETAM [Suspect]
     Indication: EPILEPSY
     Dosage: UNK
     Route: 065
  2. VALPROATE SODIUM [Suspect]
     Indication: EPILEPSY
     Route: 065

REACTIONS (3)
  - CONVULSION [None]
  - IRON OVERLOAD [None]
  - PHLEBOTOMY [None]
